FAERS Safety Report 6226598-9 (Version None)
Quarter: 2009Q2

REPORT INFORMATION
  Report Type: 
  Country: None (occurrence: None)
  Receive Date: 20090612
  Receipt Date: 20090605
  Transmission Date: 20091009
  Serious: Yes (Other)
  Sender: FDA-Public Use
  Company Number: FR-JNJFOC-20090400872

PATIENT
  Sex: Male
  Weight: 42 kg

DRUGS (1)
  1. RISPERDAL [Suspect]
     Indication: AUTISM SPECTRUM DISORDER
     Route: 048

REACTIONS (1)
  - TIC [None]
